FAERS Safety Report 15421804 (Version 1)
Quarter: 2018Q3

REPORT INFORMATION
  Report Type: Spontaneous
  Country: US (occurrence: US)
  Receive Date: 20180924
  Receipt Date: 20180924
  Transmission Date: 20181010
  Serious: No
  Sender: FDA-Public Use
  Company Number: US-ALLERGAN-1836143US

PATIENT
  Sex: Female
  Weight: 36.28 kg

DRUGS (3)
  1. NATURE?THROID [Concomitant]
     Active Substance: THYROID, PORCINE
     Indication: AUTOIMMUNE THYROIDITIS
  2. LINZESS [Suspect]
     Active Substance: LINACLOTIDE
     Indication: CONSTIPATION
     Dosage: 72 ?G, BID
     Route: 048
     Dates: start: 201806
  3. LINZESS [Suspect]
     Active Substance: LINACLOTIDE
     Dosage: 145 ?G, ONE TO TWO PILL
     Route: 048

REACTIONS (2)
  - Off label use [Unknown]
  - Drug ineffective [Unknown]
